FAERS Safety Report 18242066 (Version 2)
Quarter: 2022Q1

REPORT INFORMATION
  Report Type: Spontaneous
  Country: CH (occurrence: CH)
  Receive Date: 20200908
  Receipt Date: 20220202
  Transmission Date: 20220423
  Serious: Yes (Hospitalization)
  Sender: FDA-Public Use
  Company Number: CH-SM-2020-15296

PATIENT
  Age: 86 Year
  Sex: Female

DRUGS (9)
  1. HYDROCHLOROTHIAZIDE [Suspect]
     Active Substance: HYDROCHLOROTHIAZIDE
     Dates: end: 20200725
  2. PRAMIPEXOLE [Suspect]
     Active Substance: PRAMIPEXOLE
     Dates: end: 20200725
  3. METOLAZONE [Suspect]
     Active Substance: METOLAZONE
     Dates: end: 20200725
  4. SEROQUEL [Suspect]
     Active Substance: QUETIAPINE FUMARATE
     Dates: end: 20200725
  5. SEROQUEL [Suspect]
     Active Substance: QUETIAPINE FUMARATE
     Dates: start: 20200725, end: 20200804
  6. XARELTO [Concomitant]
     Active Substance: RIVAROXABAN
  7. BISOPROLOL [Concomitant]
     Active Substance: BISOPROLOL
  8. DAFALGAN [Concomitant]
     Active Substance: ACETAMINOPHEN
  9. PANTOZOL [Concomitant]
     Active Substance: PANTOPRAZOLE SODIUM

REACTIONS (2)
  - Hyponatraemic coma [Recovered/Resolved]
  - Inappropriate antidiuretic hormone secretion [Recovered/Resolved]

NARRATIVE: CASE EVENT DATE: 20200725
